FAERS Safety Report 16988392 (Version 1)
Quarter: 2019Q4

REPORT INFORMATION
  Report Type: Spontaneous
  Country: US (occurrence: US)
  Receive Date: 20190919
  Receipt Date: 20190919
  Transmission Date: 20200122
  Serious: No
  Sender: FDA-Public Use
  Company Number: None

PATIENT
  Sex: Female

DRUGS (1)
  1. REBIF [Suspect]
     Active Substance: INTERFERON BETA-1A
     Indication: MULTIPLE SCLEROSIS
     Dosage: ?          OTHER STRENGTH:22.MCG/0.5ML;?
     Route: 048
     Dates: start: 20180627

REACTIONS (8)
  - Gallbladder operation [None]
  - Loss of consciousness [None]
  - Fall [None]
  - Therapy cessation [None]
  - Fractured coccyx [None]
  - Upper limb fracture [None]
  - Pyrexia [None]
  - Haematoma [None]
